FAERS Safety Report 13346389 (Version 2)
Quarter: 2017Q2

REPORT INFORMATION
  Report Type: Spontaneous
  Country: JP (occurrence: JP)
  Receive Date: 20170317
  Receipt Date: 20170515
  Transmission Date: 20170830
  Serious: Yes (Death, Hospitalization, Other)
  Sender: FDA-Public Use
  Company Number: JP-PFIZER INC-2017088010

PATIENT
  Age: 86 Year
  Sex: Female

DRUGS (7)
  1. TRIAZOLAM. [Concomitant]
     Active Substance: TRIAZOLAM
     Dosage: 0.375 MG, 1X/DAY
     Route: 048
     Dates: end: 20170222
  2. BELSOMRA [Suspect]
     Active Substance: SUVOREXANT
     Dosage: 15 MG, 1X/DAY
     Route: 048
     Dates: start: 20170223, end: 20170227
  3. GLYCYRON [Concomitant]
     Active Substance: AMMONIUM GLYCYRRHIZATE\GLYCINE\METHIONINE
     Dosage: 3 DF, 3X/DAY
     Route: 048
     Dates: end: 20170227
  4. FUROSEMIDE TEVA [Concomitant]
     Active Substance: FUROSEMIDE
     Dosage: 20 MG, 1X/DAY
     Route: 048
     Dates: end: 20170227
  5. LYRICA [Suspect]
     Active Substance: PREGABALIN
     Dosage: 25 MG, 2X/DAY
     Route: 048
     Dates: end: 20170227
  6. MEMARY [Suspect]
     Active Substance: MEMANTINE HYDROCHLORIDE
     Dosage: 5 MG, 1X/DAY
     Route: 048
     Dates: start: 20170223
  7. CLOTIAZEPAM TOWA [Concomitant]
     Dosage: 5 MG, 1X/DAY
     Route: 048
     Dates: end: 20170222

REACTIONS (5)
  - Pneumonia [Fatal]
  - Delirium [Unknown]
  - Somnolence [Unknown]
  - Tuberculosis [Unknown]
  - Feeding disorder [Unknown]

NARRATIVE: CASE EVENT DATE: 20170227
